FAERS Safety Report 12069892 (Version 1)
Quarter: 2016Q1

REPORT INFORMATION
  Report Type: Report from Study
  Country: GB (occurrence: GB)
  Receive Date: 20160211
  Receipt Date: 20160211
  Transmission Date: 20160526
  Serious: Yes (Other)
  Sender: FDA-Public Use
  Company Number: GB-UCBSA-2016004852

PATIENT
  Sex: Female

DRUGS (2)
  1. CERTOLIZUMAB PEGOL [Suspect]
     Active Substance: CERTOLIZUMAB PEGOL
     Indication: RHEUMATOID ARTHRITIS
     Dosage: 200 MG, EV 2 WEEKS(QOW)
     Route: 058
     Dates: start: 20160122
  2. METHOTREXATE [Suspect]
     Active Substance: METHOTREXATE
     Indication: PRODUCT USED FOR UNKNOWN INDICATION
     Dosage: UNK, WEEKLY (QW)

REACTIONS (3)
  - Oedema peripheral [Unknown]
  - Blood pressure increased [Unknown]
  - Pain in extremity [Unknown]

NARRATIVE: CASE EVENT DATE: 2016
